FAERS Safety Report 18558609 (Version 8)
Quarter: 2021Q2

REPORT INFORMATION
  Report Type: Report from Study
  Country: BR (occurrence: BR)
  Receive Date: 20201130
  Receipt Date: 20210611
  Transmission Date: 20210717
  Serious: Yes (Life-Threatening, Hospitalization, Other)
  Sender: FDA-Public Use
  Company Number: NVSC2020BR304897

PATIENT
  Age: 57 Year
  Sex: Female
  Weight: 56.5 kg

DRUGS (7)
  1. LETROZOLE. [Concomitant]
     Active Substance: LETROZOLE
     Indication: BREAST CANCER
     Dosage: UNK
     Route: 065
  2. KISQALI [Suspect]
     Active Substance: RIBOCICLIB
     Indication: BREAST CANCER
     Dosage: 600 MG, QD (1 TABLET, FOR 21 DAYS)
     Route: 048
     Dates: start: 202012, end: 20210118
  3. FULVESTRANT. [Concomitant]
     Active Substance: FULVESTRANT
     Indication: BREAST CANCER METASTATIC
     Dosage: 500 MG
     Route: 030
     Dates: start: 20201001
  4. DENOSUMAB [Concomitant]
     Active Substance: DENOSUMAB
     Indication: PRODUCT USED FOR UNKNOWN INDICATION
     Dosage: UNK
     Route: 065
  5. KISQALI [Suspect]
     Active Substance: RIBOCICLIB
     Indication: BREAST CANCER METASTATIC
     Dosage: 200 MG, QD (3 TABLET,CYCLE FOR 21 DAYS WITH 7 DAYS BREAK)
     Route: 048
     Dates: start: 20201030
  6. KISQALI [Suspect]
     Active Substance: RIBOCICLIB
     Dosage: 2 DF, QD
     Route: 065
     Dates: start: 20210119
  7. KISQALI [Suspect]
     Active Substance: RIBOCICLIB
     Dosage: 3 DF, QD (3 TABLETS A DAY)
     Route: 048

REACTIONS (31)
  - Respiratory disorder [Recovering/Resolving]
  - Pulmonary oedema [Unknown]
  - Device related infection [Unknown]
  - Hypokinesia [Recovering/Resolving]
  - Dizziness [Unknown]
  - Chills [Unknown]
  - Thrombosis [Recovered/Resolved]
  - Oxygen saturation decreased [Recovered/Resolved]
  - Nausea [Unknown]
  - Product prescribing error [Unknown]
  - Wound [Recovering/Resolving]
  - Metastases to lung [Unknown]
  - Malaise [Unknown]
  - Asthenia [Recovering/Resolving]
  - COVID-19 [Unknown]
  - Abdominal distension [Unknown]
  - Dyspepsia [Unknown]
  - Diarrhoea [Recovering/Resolving]
  - Infection [Recovered/Resolved]
  - Skin disorder [Recovering/Resolving]
  - Nosocomial infection [Recovered/Resolved]
  - Abdominal pain upper [Unknown]
  - Renal impairment [Unknown]
  - Retching [Unknown]
  - Pruritus [Recovering/Resolving]
  - Bacterial infection [Recovered/Resolved]
  - Decreased immune responsiveness [Unknown]
  - Constipation [Recovering/Resolving]
  - Fatigue [Unknown]
  - Skin discolouration [Not Recovered/Not Resolved]
  - Dry skin [Recovering/Resolving]

NARRATIVE: CASE EVENT DATE: 202010
